FAERS Safety Report 4831947-X (Version None)
Quarter: 2005Q4

REPORT INFORMATION
  Report Type: 
  Country: None (occurrence: None)
  Receive Date: 20051116
  Receipt Date: 20051108
  Transmission Date: 20060501
  Serious: Yes (Hospitalization, Other)
  Sender: FDA-Public Use
  Company Number: FABR-11300

PATIENT
  Age: 40 Year
  Sex: Male
  Weight: 60 kg

DRUGS (4)
  1. FABRAZYME [Suspect]
     Indication: FABRY'S DISEASE
     Dosage: 70 MG Q2WKS IV
     Route: 042
     Dates: start: 20030403
  2. ENALAPRIL [Concomitant]
  3. CALCI-GLUC [Concomitant]
  4. NEORECORMON [Concomitant]

REACTIONS (5)
  - ARTERIAL THROMBOSIS [None]
  - COMPLICATIONS OF TRANSPLANTED KIDNEY [None]
  - HAEMODIALYSIS [None]
  - RENAL FAILURE CHRONIC [None]
  - RENAL TRANSPLANT [None]
